FAERS Safety Report 24694550 (Version 4)
Quarter: 2025Q1

REPORT INFORMATION
  Report Type: Report from Study
  Country: CA (occurrence: CA)
  Receive Date: 20241204
  Receipt Date: 20250321
  Transmission Date: 20250408
  Serious: Yes (Other)
  Sender: JOHNSON AND JOHNSON
  Company Number: CA-JNJFOC-20241164700

PATIENT
  Age: 76 Year
  Sex: Female

DRUGS (2)
  1. SIMPONI [Suspect]
     Active Substance: GOLIMUMAB
     Indication: Psoriatic arthropathy
     Route: 058
  2. SIMPONI [Suspect]
     Active Substance: GOLIMUMAB
     Route: 058

REACTIONS (6)
  - Psoriatic arthropathy [Not Recovered/Not Resolved]
  - Diarrhoea [Unknown]
  - Drug ineffective [Unknown]
  - Injection site bruising [Unknown]
  - Injection site pruritus [Unknown]
  - Pruritus [Not Recovered/Not Resolved]
